FAERS Safety Report 7530560-3 (Version None)
Quarter: 2011Q2

REPORT INFORMATION
  Report Type: 
  Country: None (occurrence: None)
  Receive Date: 20110607
  Receipt Date: 20090618
  Transmission Date: 20111010
  Serious: Yes (Other)
  Sender: FDA-Public Use
  Company Number: US-BAYER-200923807NA

PATIENT
  Age: 33 Year
  Sex: Female
  Weight: 82 kg

DRUGS (18)
  1. ANCEF [Concomitant]
     Dosage: 1.5 GRAMS
     Route: 042
     Dates: start: 20021127
  2. NOVOLIN R [Concomitant]
  3. DOBUTAMINE HYDROCHLORIDE [Concomitant]
     Dosage: TITRATED
     Route: 042
     Dates: start: 20021127
  4. HEPARIN [Concomitant]
     Dosage: 33,000 UNITS
     Route: 042
  5. NITROGLYCERIN [Concomitant]
  6. LEVOPHED [Concomitant]
     Dosage: TITRATED
     Route: 042
     Dates: start: 20021127
  7. METOPROLOL SUCCINATE [Concomitant]
  8. TRASYLOL [Suspect]
     Dosage: 200ML LOADING DOSE FOLLOWED BY 50 ML/HOUR INFUSION
     Route: 042
     Dates: start: 20021127, end: 20021127
  9. CEFAZOLIN [Concomitant]
  10. ACETYLSALICYLIC ACID SRT [Concomitant]
  11. MAGNESIUM SULFATE [Concomitant]
     Dosage: 2 GRAMS
     Route: 042
     Dates: start: 20021127
  12. PAXIL [Concomitant]
  13. MIDRIN [Concomitant]
  14. VASOPRESSIN [Concomitant]
     Route: 042
  15. TRASYLOL [Suspect]
     Indication: CORONARY ARTERY BYPASS
     Dosage: 1 ML INITIAL TEST DOSE
     Route: 042
     Dates: start: 20021127, end: 20021127
  16. HYDROCHLOROTHIAZIDE [Concomitant]
  17. TEMAZEPAM [Concomitant]
  18. DARVOCET [Concomitant]

REACTIONS (15)
  - MYOCARDIAL INFARCTION [None]
  - ANXIETY [None]
  - UNEVALUABLE EVENT [None]
  - NERVOUSNESS [None]
  - RENAL FAILURE [None]
  - EMOTIONAL DISTRESS [None]
  - RENAL INJURY [None]
  - MULTI-ORGAN FAILURE [None]
  - RENAL IMPAIRMENT [None]
  - STRESS [None]
  - FEAR OF DEATH [None]
  - CEREBROVASCULAR ACCIDENT [None]
  - FEAR [None]
  - PAIN [None]
  - DEPRESSION [None]
